FAERS Safety Report 6053267-0 (Version None)
Quarter: 2009Q1

REPORT INFORMATION
  Report Type: 
  Country: None (occurrence: None)
  Receive Date: 20090127
  Receipt Date: 20090114
  Transmission Date: 20090719
  Serious: Yes (Hospitalization, Other)
  Sender: FDA-Public Use
  Company Number: US-CELGENEUS-163-21880-08110170

PATIENT
  Sex: Male

DRUGS (5)
  1. REVLIMID [Suspect]
     Indication: MULTIPLE MYELOMA
     Route: 048
     Dates: start: 20080925, end: 20081101
  2. REVLIMID [Suspect]
     Route: 048
     Dates: start: 20081217
  3. ASPIRIN [Concomitant]
     Route: 065
     Dates: start: 20080925, end: 20090114
  4. EPOGEN [Concomitant]
  5. DEXAMETHASONE [Concomitant]
     Indication: MULTIPLE MYELOMA

REACTIONS (8)
  - CHRONIC OBSTRUCTIVE PULMONARY DISEASE [None]
  - DIZZINESS [None]
  - DYSGEUSIA [None]
  - DYSPHAGIA [None]
  - MOUTH ULCERATION [None]
  - PANCYTOPENIA [None]
  - PNEUMONIA ASPIRATION [None]
  - SEPSIS [None]
